FAERS Safety Report 23862729 (Version 3)
Quarter: 2024Q2

REPORT INFORMATION
  Report Type: Spontaneous
  Country: US (occurrence: US)
  Receive Date: 20240516
  Receipt Date: 20240621
  Transmission Date: 20240716
  Serious: No
  Sender: FDA-Public Use
  Company Number: US-PFIZER INC-202400107223

PATIENT
  Age: 19 Month
  Sex: Female
  Weight: 8.62 kg

DRUGS (4)
  1. GENOTROPIN [Suspect]
     Active Substance: SOMATROPIN
     Indication: Growth hormone deficiency
     Dosage: 0.3 MG, 1X/DAY
     Dates: start: 20240504
  2. KEPPRA [Concomitant]
     Active Substance: LEVETIRACETAM
     Dosage: 1.8 ML; TWO TIMES DAILY
  3. LEVOTHYROXINE [Concomitant]
     Active Substance: LEVOTHYROXINE\LEVOTHYROXINE SODIUM
     Dosage: 50 MICROGRAM; ONE TIME DAILY
  4. HYDROCORTISONE [Concomitant]
     Active Substance: HYDROCORTISONE\HYDROCORTISONE ACETATE
     Dosage: 5 MILLIGRAM, THREE TIMES A DAY

REACTIONS (2)
  - Device leakage [Unknown]
  - Drug dose omission by device [Unknown]
